FAERS Safety Report 17905105 (Version 1)
Quarter: 2020Q2

REPORT INFORMATION
  Report Type: Spontaneous
  Country: US (occurrence: US)
  Receive Date: 20200617
  Receipt Date: 20200617
  Transmission Date: 20200714
  Serious: No
  Sender: FDA-Public Use
  Company Number: US-ALLERGAN-2003159US

PATIENT

DRUGS (2)
  1. VIBERZI [Suspect]
     Active Substance: ELUXADOLINE
     Indication: PRODUCT USED FOR UNKNOWN INDICATION
     Dosage: 100 MG
  2. VIBERZI [Suspect]
     Active Substance: ELUXADOLINE
     Dosage: 75 MG, BID

REACTIONS (6)
  - Inappropriate schedule of product administration [Unknown]
  - Urinary retention [Unknown]
  - Bladder pain [Unknown]
  - Product measured potency issue [Unknown]
  - Wrong technique in product usage process [Unknown]
  - Fatigue [Unknown]
